FAERS Safety Report 8458412-5 (Version None)
Quarter: 2012Q2

REPORT INFORMATION
  Report Type: 
  Country: None (occurrence: None)
  Receive Date: 20120622
  Receipt Date: 20120614
  Transmission Date: 20120825
  Serious: Yes (Hospitalization)
  Sender: FDA-Public Use
  Company Number: US-ASTELLAS-2012US004391

PATIENT
  Sex: Female

DRUGS (1)
  1. ERLOTINIB HYDROCHLORIDE [Suspect]
     Indication: LUNG CARCINOMA CELL TYPE UNSPECIFIED STAGE 0
     Dosage: 150 MG, UID/QD
     Route: 048
     Dates: start: 20120419

REACTIONS (6)
  - STOMATITIS [None]
  - PNEUMONIA [None]
  - RASH [None]
  - HOSPITALISATION [None]
  - HAEMOGLOBIN DECREASED [None]
  - DRUG INTOLERANCE [None]
